FAERS Safety Report 16814711 (Version 2)
Quarter: 2019Q3

REPORT INFORMATION
  Report Type: Spontaneous
  Country: DE (occurrence: DE)
  Receive Date: 20190917
  Receipt Date: 20190926
  Transmission Date: 20191005
  Serious: Yes (Death, Life-Threatening, Other)
  Sender: FDA-Public Use
  Company Number: DE-SA-2019SA256288

PATIENT
  Age: 34 Year
  Sex: Male
  Weight: 132 kg

DRUGS (10)
  1. TESTOSTERONE PROPIONATE. [Suspect]
     Active Substance: TESTOSTERONE PROPIONATE
     Dosage: AMPULE
  2. LIOTHYRONINE HYDROCHLORIDE [Suspect]
     Active Substance: LIOTHYRONINE
     Dosage: UNK (THYBON 100 HENNING)
  3. CLOMIFENE CITRATE [Suspect]
     Active Substance: CLOMIPHENE
     Dosage: UNK
  4. CLOMIFEN-RATIOPHARM [Suspect]
     Active Substance: CLOMIPHENE
     Dosage: UNK
  5. SPIROPENT [Suspect]
     Active Substance: CLENBUTEROL HYDROCHLORIDE
     Dosage: UNK
  6. TESTOSTERONE ENANTATE [Suspect]
     Active Substance: TESTOSTERONE
     Dosage: AMPULE
  7. DROSTANOLONE [Suspect]
     Active Substance: DROMOSTANOLONE
     Dosage: UNK
  8. STANOL [STANOZOLOL] [Suspect]
     Active Substance: STANOZOLOL
     Dosage: UNK
  9. METANDIENONE [Suspect]
     Active Substance: METHANDROSTENOLONE
     Dosage: UNK
  10. TRENBOLONE ACETATE [Suspect]
     Active Substance: TRENBOLONE ACETATE
     Dosage: UNK

REACTIONS (8)
  - Brain oedema [Fatal]
  - Intentional product misuse [Fatal]
  - Visceral congestion [Fatal]
  - Cardiac failure congestive [Fatal]
  - Dyspnoea [Fatal]
  - Pulmonary haemorrhage [Fatal]
  - Pulmonary oedema [Fatal]
  - Pulmonary congestion [Fatal]
